FAERS Safety Report 9605667 (Version 1)
Quarter: 2013Q4

REPORT INFORMATION
  Report Type: Spontaneous
  Country: GB (occurrence: GB)
  Receive Date: 20131008
  Receipt Date: 20131008
  Transmission Date: 20140711
  Serious: Yes (Other)
  Sender: FDA-Public Use
  Company Number: GB-ROCHE-1284214

PATIENT
  Age: 49 Year
  Sex: Male

DRUGS (4)
  1. RIBAVIRIN [Suspect]
     Indication: HEPATITIS C
     Route: 048
     Dates: start: 20121130
  2. TELAPREVIR [Suspect]
     Indication: HEPATITIS C
     Route: 048
     Dates: start: 20121130, end: 20130222
  3. PEGINTERFERON ALFA-2B [Suspect]
     Indication: HEPATITIS C
     Route: 058
     Dates: start: 20121130
  4. LANOLIN [Concomitant]

REACTIONS (10)
  - Anaemia [Not Recovered/Not Resolved]
  - Anxiety [Unknown]
  - Haemorrhoids [Not Recovered/Not Resolved]
  - Hyperaesthesia [Recovered/Resolved]
  - Insomnia [Not Recovered/Not Resolved]
  - Depressed mood [Unknown]
  - Pruritus [Not Recovered/Not Resolved]
  - Rash pruritic [Not Recovered/Not Resolved]
  - Anorectal disorder [Unknown]
  - Nausea [Not Recovered/Not Resolved]
